FAERS Safety Report 5099884-6 (Version None)
Quarter: 2006Q3

REPORT INFORMATION
  Report Type: 
  Country: None (occurrence: None)
  Receive Date: 20060906
  Receipt Date: 20060824
  Transmission Date: 20061208
  Serious: Yes (Hospitalization)
  Sender: FDA-Public Use
  Company Number: 2006BI008111

PATIENT
  Age: 64 Year
  Sex: Female

DRUGS (14)
  1. AVONEX [Suspect]
     Indication: MULTIPLE SCLEROSIS
     Dosage: 30 UG;QW;IM
     Route: 030
     Dates: start: 20051201
  2. METFORMIN HCL [Concomitant]
  3. COZAAR [Concomitant]
  4. AVANDIA [Concomitant]
  5. NORVASC [Concomitant]
  6. CO Q10 [Concomitant]
  7. VITAMIN B COMPLEX CAP [Concomitant]
  8. FOLIC ACID [Concomitant]
  9. CRESTOR [Concomitant]
  10. LECITHIN [Concomitant]
  11. SELENIUM SULFIDE [Concomitant]
  12. ASCORBIC ACID [Concomitant]
  13. VITAMIN E [Concomitant]
  14. OMEGA 3 [Concomitant]

REACTIONS (1)
  - ENDOMETRIAL CANCER STAGE II [None]
